FAERS Safety Report 6838457-9 (Version None)
Quarter: 2010Q3

REPORT INFORMATION
  Report Type: 
  Country: None (occurrence: None)
  Receive Date: 20100713
  Receipt Date: 20070613
  Transmission Date: 20110219
  Serious: No
  Sender: FDA-Public Use
  Company Number: US-PFIZER INC-2007049924

PATIENT
  Sex: Female
  Weight: 77.727 kg

DRUGS (3)
  1. CHANTIX [Suspect]
     Indication: SMOKING CESSATION THERAPY
     Dates: start: 20070530
  2. SYNTHROID [Concomitant]
     Indication: HYPOTHYROIDISM
  3. LEXAPRO [Concomitant]
     Indication: ANXIETY

REACTIONS (4)
  - ABNORMAL DREAMS [None]
  - INCREASED APPETITE [None]
  - NAUSEA [None]
  - WEIGHT INCREASED [None]
